FAERS Safety Report 4676213-0 (Version None)
Quarter: 2005Q2

REPORT INFORMATION
  Report Type: 
  Country: None (occurrence: None)
  Receive Date: 20050527
  Receipt Date: 20050124
  Transmission Date: 20051028
  Serious: Yes (Life-Threatening, Hospitalization, Other)
  Sender: FDA-Public Use
  Company Number: US-GLAXOSMITHKLINE-A0541963A

PATIENT
  Age: 61 Year
  Sex: Male
  Weight: 90.5 kg

DRUGS (11)
  1. WELLBUTRIN XL [Suspect]
     Dosage: 150MG PER DAY
     Route: 048
     Dates: start: 20041015, end: 20041030
  2. DEPAKOTE [Concomitant]
     Dosage: 500MG TWICE PER DAY
     Route: 065
  3. PERCOCET [Concomitant]
     Dosage: 325MG AS REQUIRED
     Route: 065
  4. LORAZEPAM [Concomitant]
     Dosage: 2MG FOUR TIMES PER DAY
     Route: 048
  5. KLONOPIN [Concomitant]
     Dosage: 1MG AT NIGHT
     Route: 065
  6. ZOLOFT [Concomitant]
     Dosage: 100MG TWICE PER DAY
     Route: 048
  7. FUROSEMIDE [Concomitant]
     Dosage: 40MG TWICE PER DAY
     Route: 065
  8. LOTREL [Concomitant]
     Route: 065
  9. KLOR-CON [Concomitant]
     Route: 065
  10. OXYCONTIN [Concomitant]
     Dosage: 40MG THREE TIMES PER DAY
     Route: 065
  11. ISOSORBIDE [Concomitant]
     Dosage: 20MG TWICE PER DAY

REACTIONS (5)
  - ANAPHYLACTIC REACTION [None]
  - DYSPNOEA [None]
  - PRURITUS GENERALISED [None]
  - SWELLING FACE [None]
  - SWOLLEN TONGUE [None]
